FAERS Safety Report 25785181 (Version 1)
Quarter: 2025Q3

REPORT INFORMATION
  Report Type: Spontaneous
  Country: EU (occurrence: EU)
  Receive Date: 20250910
  Receipt Date: 20250910
  Transmission Date: 20251020
  Serious: Yes (Other)
  Sender: AUROBINDO
  Company Number: EU-AFSSAPS-TS2025000923

PATIENT
  Age: 31 Year
  Sex: Female
  Weight: 37 kg

DRUGS (6)
  1. DIAZEPAM [Suspect]
     Active Substance: DIAZEPAM
     Indication: Product used for unknown indication
     Dosage: 2 MILLIGRAM, 3 TIMES A DAY
     Route: 048
  2. ZOLPIDEM [Suspect]
     Active Substance: ZOLPIDEM TARTRATE
     Indication: Product used for unknown indication
     Route: 048
  3. KETAMINE [Suspect]
     Active Substance: KETAMINE
     Indication: Pain
     Route: 042
     Dates: start: 20210125
  4. AMITRIPTYLINE HYDROCHLORIDE [Suspect]
     Active Substance: AMITRIPTYLINE HYDROCHLORIDE
     Indication: Pain
     Route: 042
     Dates: start: 20210125
  5. TACROLIMUS [Suspect]
     Active Substance: TACROLIMUS
     Indication: Organ transplant
     Route: 048
     Dates: start: 2015
  6. TRIHEXYPHENIDYL [Suspect]
     Active Substance: TRIHEXYPHENIDYL
     Indication: Dystonia
     Dosage: 4 MILLIGRAM, 3 TIMES A DAY
     Route: 048

REACTIONS (1)
  - Chronic hepatitis [Not Recovered/Not Resolved]

NARRATIVE: CASE EVENT DATE: 20211206
